FAERS Safety Report 17367531 (Version 1)
Quarter: 2020Q1

REPORT INFORMATION
  Report Type: Spontaneous
  Country: FR (occurrence: FR)
  Receive Date: 20200204
  Receipt Date: 20200204
  Transmission Date: 20200409
  Serious: Yes (Life-Threatening, Other)
  Sender: FDA-Public Use
  Company Number: FR-FRESENIUS KABI-FK202001020

PATIENT
  Age: 77 Year
  Sex: Female

DRUGS (4)
  1. ACYCLOVIR SODIUM (MANUFACTURER UNKNOWN) [Suspect]
     Active Substance: ACYCLOVIR SODIUM
     Indication: HERPES ZOSTER MENINGOENCEPHALITIS
     Route: 065
     Dates: start: 20180509
  2. GENTAMICIN. [Concomitant]
     Active Substance: GENTAMICIN
     Indication: ENCEPHALITIS
     Dosage: UNKNOWN
     Route: 065
  3. AMOXICILLIN. [Concomitant]
     Active Substance: AMOXICILLIN
     Indication: ENCEPHALITIS
     Dosage: UNKNOWN
     Route: 065
  4. ACYCLOVIR SODIUM (MANUFACTURER UNKNOWN) [Suspect]
     Active Substance: ACYCLOVIR SODIUM
     Dosage: DILUTED IN 250ML OF SODIUM CHLORIDE; FINAL CONCENTRATION: 4.8 MG/L
     Route: 065
     Dates: start: 20180511, end: 20180513

REACTIONS (3)
  - Confusional state [Recovered/Resolved]
  - Acute kidney injury [Recovered/Resolved]
  - Agitation [Unknown]

NARRATIVE: CASE EVENT DATE: 20180513
